FAERS Safety Report 17313444 (Version 2)
Quarter: 2020Q1

REPORT INFORMATION
  Report Type: Spontaneous
  Country: CN (occurrence: CN)
  Receive Date: 20200124
  Receipt Date: 20200125
  Transmission Date: 20200409
  Serious: Yes (Other)
  Sender: FDA-Public Use
  Company Number: CN-009507513-2001CHN007399

PATIENT
  Age: 61 Year
  Sex: Female
  Weight: 47 kg

DRUGS (2)
  1. SINGULAIR [Suspect]
     Active Substance: MONTELUKAST SODIUM
     Indication: LUNG SQUAMOUS CELL CARCINOMA METASTATIC
  2. SINGULAIR [Suspect]
     Active Substance: MONTELUKAST SODIUM
     Indication: OBSTRUCTIVE AIRWAYS DISORDER
     Dosage: 10 MG, EVERY NIGHT (QN)
     Dates: start: 20191216, end: 20191217

REACTIONS (3)
  - Dyspnoea [Recovering/Resolving]
  - Product use in unapproved indication [Unknown]
  - Mental disorder [Unknown]

NARRATIVE: CASE EVENT DATE: 20191216
